FAERS Safety Report 4825097-6 (Version None)
Quarter: 2005Q4

REPORT INFORMATION
  Report Type: 
  Country: None (occurrence: None)
  Receive Date: 20051109
  Receipt Date: 20051109
  Transmission Date: 20060501
  Serious: Yes (Hospitalization)
  Sender: FDA-Public Use
  Company Number: None

PATIENT
  Age: 65 Year
  Sex: Male

DRUGS (2)
  1. GENTAMICIN [Suspect]
     Indication: PROPHYLAXIS
     Dosage: 140MG   Q12H    IV BOLUS
     Route: 040
     Dates: start: 20050606, end: 20050614
  2. GENTAMICIN [Suspect]
     Indication: PROPHYLAXIS
     Dosage: 140MG   Q12H   IV BOLUS
     Route: 040
     Dates: start: 20050616, end: 20050624

REACTIONS (2)
  - RENAL FAILURE ACUTE [None]
  - RENAL TUBULAR NECROSIS [None]
